FAERS Safety Report 6580180-2 (Version None)
Quarter: 2010Q1

REPORT INFORMATION
  Report Type: 
  Country: None (occurrence: None)
  Receive Date: 20100212
  Receipt Date: 20100203
  Transmission Date: 20100710
  Serious: Yes (Other)
  Sender: FDA-Public Use
  Company Number: US-WATSON-2010-01273

PATIENT
  Sex: Female

DRUGS (3)
  1. LISINOPRIL AND HYDROCHLOROTHIAZIDE [Suspect]
     Indication: BLOOD PRESSURE
     Dosage: 1 TABLET, QAM
     Route: 048
     Dates: start: 20090701
  2. MELOXICAM [Concomitant]
     Indication: CHONDROPATHY
     Dosage: UNK
     Route: 048
     Dates: start: 20100114, end: 20100128
  3. IBUPROFEN [Concomitant]
     Indication: CHONDROPATHY
     Dosage: UNK
     Route: 048
     Dates: end: 20100113

REACTIONS (11)
  - CHROMATURIA [None]
  - CONVULSION [None]
  - DEHYDRATION [None]
  - DISORIENTATION [None]
  - DIZZINESS [None]
  - FATIGUE [None]
  - FLUSHING [None]
  - LIP SWELLING [None]
  - LOSS OF CONSCIOUSNESS [None]
  - PRURITUS [None]
  - THIRST [None]
